FAERS Safety Report 14211902 (Version 1)
Quarter: 2017Q4

REPORT INFORMATION
  Report Type: Spontaneous
  Country: FR (occurrence: FR)
  Receive Date: 20171122
  Receipt Date: 20171122
  Transmission Date: 20180321
  Serious: Yes (Disabling)
  Sender: FDA-Public Use
  Company Number: FR-JNJFOC-20171118627

PATIENT
  Age: 61 Year
  Sex: Female

DRUGS (4)
  1. MELLERIL [Suspect]
     Active Substance: THIORIDAZINE HYDROCHLORIDE
     Indication: PSYCHOTIC DISORDER
     Dosage: STRENGTH: 40 MG/ML
     Route: 065
     Dates: start: 20001130, end: 2004
  2. HALDOL [Suspect]
     Active Substance: HALOPERIDOL
     Indication: PSYCHOTIC DISORDER
     Dosage: STRENGTH: 2 MG/ML
     Route: 065
     Dates: start: 19800302, end: 20001130
  3. TRANXENE [Suspect]
     Active Substance: CLORAZEPATE DIPOTASSIUM
     Indication: ANXIETY
     Dosage: STRENGTH: 50 MG
     Route: 048
     Dates: start: 19800302, end: 19900515
  4. TERCIAN [Suspect]
     Active Substance: CYAMEMAZINE
     Indication: PSYCHOTIC DISORDER
     Dosage: STRENGTH: 40 MG/ML
     Route: 065
     Dates: start: 19800302, end: 20001130

REACTIONS (4)
  - Dyskinesia [Not Recovered/Not Resolved]
  - Tic [Unknown]
  - Incontinence [Not Recovered/Not Resolved]
  - Tremor [Not Recovered/Not Resolved]

NARRATIVE: CASE EVENT DATE: 2004
